FAERS Safety Report 7198417-8 (Version None)
Quarter: 2010Q4

REPORT INFORMATION
  Report Type: 
  Country: None (occurrence: None)
  Receive Date: 20101227
  Receipt Date: 20101215
  Transmission Date: 20110411
  Serious: Yes (Other)
  Sender: FDA-Public Use
  Company Number: PHHY2010JP85811

PATIENT
  Age: 17 Year
  Sex: Male

DRUGS (5)
  1. CYCLOSPORINE [Suspect]
     Indication: UNRELATED DONOR BONE MARROW TRANSPLANTATION THERAPY
     Route: 048
  2. ETOPOSIDE [Concomitant]
  3. CYCLOPHOSPHAMIDE [Concomitant]
  4. MITOXANTRONE HYDROCHLORIDE [Concomitant]
  5. METHOTREXATE [Concomitant]

REACTIONS (2)
  - THYROID CANCER [None]
  - TONSILLAR HYPERTROPHY [None]
